FAERS Safety Report 12191415 (Version 1)
Quarter: 2016Q1

REPORT INFORMATION
  Report Type: Spontaneous
  Country: FR (occurrence: FR)
  Receive Date: 20160318
  Receipt Date: 20160318
  Transmission Date: 20160526
  Serious: Yes (Hospitalization, Disabling, Other)
  Sender: FDA-Public Use
  Company Number: FR-TEVA-644557ISR

PATIENT
  Age: 6 Decade
  Sex: Male

DRUGS (3)
  1. POVIDONE IODINE 5% [Concomitant]
  2. MYCOPHENOLATE MOFETIL. [Suspect]
     Active Substance: MYCOPHENOLATE MOFETIL
     Indication: HENOCH-SCHONLEIN PURPURA NEPHRITIS
  3. DEXAMETHASONE. [Suspect]
     Active Substance: DEXAMETHASONE
     Indication: DIABETIC RETINAL OEDEMA
     Route: 031

REACTIONS (2)
  - Blindness [Unknown]
  - Necrotising fasciitis [Recovered/Resolved]
